FAERS Safety Report 11054912 (Version 1)
Quarter: 2015Q2

REPORT INFORMATION
  Report Type: Report from Study
  Country: ES (occurrence: ES)
  Receive Date: 20150422
  Receipt Date: 20150422
  Transmission Date: 20150821
  Serious: Yes (Death, Other)
  Sender: FDA-Public Use
  Company Number: ES-CELGENE-144-21880-14080322

PATIENT

DRUGS (2)
  1. REVLIMID [Suspect]
     Active Substance: LENALIDOMIDE
     Indication: CHRONIC LYMPHOCYTIC LEUKAEMIA
     Dosage: 2.5 MILLIGRAM
     Route: 048
  2. DEXAMETHASONE. [Concomitant]
     Active Substance: DEXAMETHASONE
     Indication: CHRONIC LYMPHOCYTIC LEUKAEMIA
     Route: 065

REACTIONS (12)
  - Thrombocytopenia [Unknown]
  - Neutropenia [Unknown]
  - Respiratory tract infection [Unknown]
  - Febrile neutropenia [Unknown]
  - Chronic lymphocytic leukaemia [Fatal]
  - Asthenia [Unknown]
  - Rash [Unknown]
  - Pneumonitis [Unknown]
  - Diarrhoea [Unknown]
  - Infection [Unknown]
  - Pyrexia [Unknown]
  - Anaemia [Unknown]
